FAERS Safety Report 8982361 (Version 1)
Quarter: 2012Q4

REPORT INFORMATION
  Report Type: 
  Country: US (occurrence: US)
  Receive Date: 20121212
  Receipt Date: 20121212
  Transmission Date: 20130627
  Serious: Yes (Other)
  Sender: FDA-Public Use
  Company Number: US-ASTELLAS-1107135

PATIENT
  Sex: Male

DRUGS (1)
  1. TARCEVA [Suspect]
     Indication: PANCREATIC CARCINOMA
     Route: 065

REACTIONS (5)
  - Drug interaction [Unknown]
  - Metastases to pelvis [Unknown]
  - Hearing impaired [Unknown]
  - Dysgeusia [Unknown]
  - Feeling abnormal [Unknown]
